FAERS Safety Report 10210307 (Version 1)
Quarter: 2014Q2

REPORT INFORMATION
  Report Type: Spontaneous
  Country: US (occurrence: US)
  Receive Date: 20140602
  Receipt Date: 20140602
  Transmission Date: 20141212
  Serious: Yes (Hospitalization)
  Sender: FDA-Public Use
  Company Number: US-BAYER-2014-079406

PATIENT
  Age: 33 Year
  Sex: Female
  Weight: 74 kg

DRUGS (20)
  1. YAZ [Suspect]
     Indication: CONTRACEPTION
  2. GIANVI [Suspect]
     Dosage: UNK
     Dates: end: 20120201
  3. FLAGYL [Concomitant]
     Indication: INFECTION
     Dosage: 500 MG,2 TIMES DAILY
     Route: 048
  4. IBUPROFEN [Concomitant]
     Dosage: UNK MG, UNK
  5. FLEXERIL [Concomitant]
     Indication: MUSCLE SPASMS
     Dosage: 10 MG, 3 TIMES DAILY
     Route: 048
  6. ARMOUR THYROID [Concomitant]
     Dosage: 30 MG,1.5 TABLETS DAILY
     Route: 048
  7. NORCO [Concomitant]
     Dosage: 5-325 MG
  8. MIRALAX [Concomitant]
  9. VICODIN [Concomitant]
  10. LODINE [Concomitant]
     Indication: PAIN
     Dosage: 300 MG, EVERY 8 HOURS AS NEEDED
     Route: 048
  11. ZANAFLEX [Concomitant]
     Indication: MYALGIA
     Dosage: 4 MG,EVERY 8 HOURS
     Route: 048
  12. ZANAFLEX [Concomitant]
     Indication: MUSCLE SPASMS
  13. TINDAMAX [Concomitant]
     Dosage: 500 MG, 4 TABLETS DAILY
     Route: 048
  14. ZOLOFT [Concomitant]
     Dosage: 100 MG, DAILY
     Route: 048
  15. VALIUM [Concomitant]
     Indication: ANXIETY
     Dosage: 5 MG, PRN, 2 TIMES DAILY
     Route: 048
  16. ALLEGRA-D 24 HOUR [Concomitant]
     Dosage: DAILY
  17. FLONASE [Concomitant]
     Dosage: 50 MCG; 2 SPRAYS IN EACH NOSTRIL
     Route: 045
  18. PROVENTIL [Concomitant]
     Dosage: 108 MCG; 2 PUFFS EVERY 4 HOURS
  19. NAPROSYN [Concomitant]
     Dosage: 500 MG,2 TIMES DAILY
     Route: 048
  20. SERTRALINE [Concomitant]

REACTIONS (2)
  - Cerebral artery thrombosis [None]
  - Cerebrovascular accident [None]
